FAERS Safety Report 20158641 (Version 3)
Quarter: 2021Q4

REPORT INFORMATION
  Report Type: Spontaneous
  Country: AT (occurrence: AT)
  Receive Date: 20211207
  Receipt Date: 20211211
  Transmission Date: 20220303
  Serious: Yes (Death, Other)
  Sender: FDA-Public Use
  Company Number: AT-SA-2021SA405798

PATIENT

DRUGS (2)
  1. LIBTAYO [Suspect]
     Active Substance: CEMIPLIMAB-RWLC
     Indication: Non-small cell lung cancer
     Dosage: 350 MG
  2. LIBTAYO [Suspect]
     Active Substance: CEMIPLIMAB-RWLC
     Dosage: 350 MG
     Dates: start: 20210902, end: 20210902

REACTIONS (3)
  - Myocardial infarction [Fatal]
  - General physical health deterioration [Fatal]
  - Product dose omission issue [Unknown]
